FAERS Safety Report 15663556 (Version 3)
Quarter: 2018Q4

REPORT INFORMATION
  Report Type: Report from Study
  Country: US (occurrence: US)
  Receive Date: 20181128
  Receipt Date: 20181207
  Transmission Date: 20190205
  Serious: Yes (Hospitalization, Other)
  Sender: FDA-Public Use
  Company Number: US-BRISTOL-MYERS SQUIBB COMPANY-BMS-2018-111235

PATIENT
  Age: 73 Year
  Sex: Male
  Weight: 97.2 kg

DRUGS (2)
  1. NIVOLUMAB [Suspect]
     Active Substance: NIVOLUMAB
     Indication: NEUROENDOCRINE CARCINOMA
     Dosage: 3 MG/KG, UNK
     Route: 042
     Dates: start: 20181022
  2. IPILIMUMAB [Suspect]
     Active Substance: IPILIMUMAB
     Indication: NEUROENDOCRINE CARCINOMA
     Dosage: 1 MG/KG, UNK
     Route: 042
     Dates: start: 20181022

REACTIONS (8)
  - Haemorrhagic anaemia [Recovering/Resolving]
  - Haematuria [Recovering/Resolving]
  - Fall [Unknown]
  - Pulmonary embolism [Unknown]
  - Asthenia [Unknown]
  - Pain in extremity [Unknown]
  - Staphylococcal infection [Recovering/Resolving]
  - Escherichia urinary tract infection [Recovering/Resolving]

NARRATIVE: CASE EVENT DATE: 20181114
